FAERS Safety Report 16170469 (Version 3)
Quarter: 2019Q3

REPORT INFORMATION
  Report Type: Spontaneous
  Country: US (occurrence: US)
  Receive Date: 20190408
  Receipt Date: 20190816
  Transmission Date: 20191004
  Serious: No
  Sender: FDA-Public Use
  Company Number: US-PFIZER INC-2019087162

PATIENT
  Age: 39 Year
  Sex: Female
  Weight: 109 kg

DRUGS (8)
  1. RASUVO [Concomitant]
     Active Substance: METHOTREXATE SODIUM
     Indication: ARTHRITIS
     Dosage: 20 MG, WEEKLY
     Route: 058
     Dates: start: 201603
  2. METHOTREXATE. [Concomitant]
     Active Substance: METHOTREXATE
     Dosage: UNK
  3. ENBREL [Concomitant]
     Active Substance: ETANERCEPT
     Dosage: UNK
  4. RITUXAN [Concomitant]
     Active Substance: RITUXIMAB
     Indication: ARTHRITIS
     Dosage: UNK, WEEKLY (ONCE A WEEK FOR 2 WEEKS)
     Route: 042
     Dates: start: 20190228
  5. RITUXAN [Concomitant]
     Active Substance: RITUXIMAB
     Dosage: UNK, WEEKLY (ONCE A WEEK FOR 2 WEEKS)
     Route: 042
     Dates: start: 20190314
  6. GABAPENTIN. [Concomitant]
     Active Substance: GABAPENTIN
     Dosage: 400 MG, 3X/DAY
     Dates: start: 201702
  7. FLECTOR [Suspect]
     Active Substance: DICLOFENAC EPOLAMINE
     Indication: RHEUMATOID ARTHRITIS
     Dosage: 1 DF, 2X/DAY (TO SEVERAL SPOTS ON HER FEET AND HER BACK/AFFECTED AREAS)
     Route: 062
     Dates: start: 201412
  8. FLECTOR [Suspect]
     Active Substance: DICLOFENAC EPOLAMINE
     Indication: FIBROMYALGIA

REACTIONS (2)
  - Product use in unapproved indication [Unknown]
  - Off label use [Unknown]

NARRATIVE: CASE EVENT DATE: 201412
